FAERS Safety Report 6862226-7 (Version None)
Quarter: 2010Q3

REPORT INFORMATION
  Report Type: 
  Country: None (occurrence: None)
  Receive Date: 20100721
  Receipt Date: 20100709
  Transmission Date: 20110219
  Serious: Yes (Hospitalization)
  Sender: FDA-Public Use
  Company Number: PHHY2010US33975

PATIENT
  Sex: Male
  Weight: 81.8 kg

DRUGS (2)
  1. EXJADE [Suspect]
     Dosage: 1500 MG, QD
     Route: 048
  2. EXJADE [Suspect]
     Route: 048

REACTIONS (3)
  - BACK PAIN [None]
  - MUSCULOSKELETAL CHEST PAIN [None]
  - RENAL DISORDER [None]
